FAERS Safety Report 6337904-9 (Version None)
Quarter: 2009Q3

REPORT INFORMATION
  Report Type: 
  Country: None (occurrence: None)
  Receive Date: 20090902
  Receipt Date: 20090825
  Transmission Date: 20100115
  Serious: Yes (Other)
  Sender: FDA-Public Use
  Company Number: US-ABBOTT-09P-163-0593552-00

PATIENT
  Sex: Female
  Weight: 105.33 kg

DRUGS (13)
  1. SIMCOR [Suspect]
     Indication: HIGH DENSITY LIPOPROTEIN DECREASED
     Dosage: 1000/20MG
     Route: 048
     Dates: start: 20090707
  2. SIMCOR [Interacting]
     Indication: BLOOD TRIGLYCERIDES INCREASED
  3. SIMCOR [Interacting]
     Indication: LOW DENSITY LIPOPROTEIN INCREASED
  4. LOPID [Interacting]
     Indication: BLOOD CHOLESTEROL INCREASED
     Dates: start: 20090701
  5. LOPID [Interacting]
     Dates: end: 20090803
  6. COREG [Concomitant]
     Indication: HYPERTENSION
     Route: 048
  7. ALLOPURINOL [Concomitant]
     Indication: GOUT
     Route: 048
  8. ACTOS [Concomitant]
     Indication: DIABETES MELLITUS
     Route: 048
  9. LISINOPRIL [Concomitant]
     Indication: HYPERTENSION
     Route: 048
     Dates: end: 20090803
  10. VITAMIN D [Concomitant]
     Indication: VITAMIN SUPPLEMENTATION
     Route: 048
  11. LEVOXYL [Concomitant]
     Indication: HYPOTHYROIDISM
     Route: 048
  12. COUMADIN [Concomitant]
     Indication: ANTICOAGULANT THERAPY
     Route: 048
  13. ASPIRIN [Concomitant]
     Indication: DRUG USE FOR UNKNOWN INDICATION
     Route: 048

REACTIONS (15)
  - BLOOD POTASSIUM INCREASED [None]
  - BLOOD PRESSURE INCREASED [None]
  - DECREASED APPETITE [None]
  - DEHYDRATION [None]
  - DIARRHOEA [None]
  - DIZZINESS [None]
  - DRUG INTERACTION [None]
  - ERYTHEMA [None]
  - FEELING HOT [None]
  - FLUSHING [None]
  - MALAISE [None]
  - NAUSEA [None]
  - PARAESTHESIA [None]
  - PRURITUS [None]
  - SKIN BURNING SENSATION [None]
